FAERS Safety Report 17860620 (Version 1)
Quarter: 2020Q2

REPORT INFORMATION
  Report Type: Spontaneous
  Country: US (occurrence: US)
  Receive Date: 20200604
  Receipt Date: 20200604
  Transmission Date: 20200714
  Serious: No
  Sender: FDA-Public Use
  Company Number: US-SA-2020SA140334

PATIENT

DRUGS (1)
  1. FERRLECIT [Suspect]
     Active Substance: SODIUM FERRIC GLUCONATE COMPLEX

REACTIONS (7)
  - Dyspnoea [Unknown]
  - Vomiting [Unknown]
  - Swelling [Unknown]
  - Chest pain [Unknown]
  - Nausea [Unknown]
  - Product quality issue [Unknown]
  - Hypersensitivity [Unknown]
